FAERS Safety Report 8461122-1 (Version None)
Quarter: 2012Q2

REPORT INFORMATION
  Report Type: 
  Country: None (occurrence: None)
  Receive Date: 20120625
  Receipt Date: 20120619
  Transmission Date: 20120825
  Serious: No
  Sender: FDA-Public Use
  Company Number: US-PFIZER INC-2012147724

PATIENT

DRUGS (1)
  1. AMLODIPINE BESYLATE [Suspect]
     Dosage: 2.5 MG, UNK

REACTIONS (6)
  - DIZZINESS [None]
  - HEADACHE [None]
  - BURNING SENSATION [None]
  - MUSCLE SPASMS [None]
  - ABNORMAL SENSATION IN EYE [None]
  - PRURITUS [None]
